FAERS Safety Report 9411881 (Version 2)
Quarter: 2013Q3

REPORT INFORMATION
  Report Type: Report from Study
  Country: BR (occurrence: BR)
  Receive Date: 20130722
  Receipt Date: 20130920
  Transmission Date: 20140515
  Serious: Yes (Hospitalization, Other)
  Sender: FDA-Public Use
  Company Number: PHHY2013BR077028

PATIENT
  Age: 66 Year
  Sex: Female
  Weight: 66 kg

DRUGS (2)
  1. DIOVAN HCT [Suspect]
     Indication: HYPERTENSION
     Dosage: 1 DF (160/12.5 MG), DAILY
     Route: 048
  2. DIOVAN HCT [Suspect]
     Dosage: 1 DF (160/12.5MG), MORNING AND NIGHT
     Route: 048
     Dates: end: 20130715

REACTIONS (10)
  - Blood pressure increased [Recovered/Resolved]
  - Neck pain [Recovered/Resolved]
  - Diabetes mellitus [Recovering/Resolving]
  - Vision blurred [Recovered/Resolved]
  - Panic disorder [Unknown]
  - Malaise [Not Recovered/Not Resolved]
  - Somnolence [Unknown]
  - Dizziness [Not Recovered/Not Resolved]
  - Nausea [Not Recovered/Not Resolved]
  - Headache [Recovered/Resolved]
